FAERS Safety Report 14849251 (Version 1)
Quarter: 2018Q2

REPORT INFORMATION
  Report Type: Spontaneous
  Country: CN (occurrence: CN)
  Receive Date: 20180504
  Receipt Date: 20180504
  Transmission Date: 20180711
  Serious: Yes (Hospitalization)
  Sender: FDA-Public Use
  Company Number: CN-TERSERA THERAPEUTICS, LLC-2047233

PATIENT
  Sex: Female

DRUGS (1)
  1. ZOLADEX [Suspect]
     Active Substance: GOSERELIN ACETATE
     Indication: PRODUCT USED FOR UNKNOWN INDICATION
     Route: 058
     Dates: start: 20180422

REACTIONS (5)
  - Ascites [Unknown]
  - Abdominal pain [Unknown]
  - Back pain [Unknown]
  - Dysstasia [Unknown]
  - Dysuria [Unknown]

NARRATIVE: CASE EVENT DATE: 20180422
